FAERS Safety Report 24669195 (Version 1)
Quarter: 2024Q4

REPORT INFORMATION
  Report Type: Spontaneous
  Country: US (occurrence: US)
  Receive Date: 20241127
  Receipt Date: 20241127
  Transmission Date: 20250115
  Serious: No
  Sender: GLENMARK
  Company Number: US-GLENMARK PHARMACEUTICALS-2024GMK093669

PATIENT

DRUGS (2)
  1. AZELAIC ACID [Suspect]
     Active Substance: AZELAIC ACID
     Indication: Rosacea
     Dosage: UNK (APPLYING IT TOPICALLY ONCE OR TWICE DAILY)
     Route: 061
  2. SOOLANTRA [Concomitant]
     Active Substance: IVERMECTIN
     Indication: Rosacea
     Dosage: UNK (ONCE A DAY AT NIGHT)
     Route: 061

REACTIONS (3)
  - Hyperhidrosis [Recovered/Resolved]
  - Product use issue [Unknown]
  - Recalled product administered [Unknown]
